FAERS Safety Report 17769691 (Version 7)
Quarter: 2021Q4

REPORT INFORMATION
  Report Type: Spontaneous
  Country: US (occurrence: US)
  Receive Date: 20200512
  Receipt Date: 20211214
  Transmission Date: 20220303
  Serious: Yes (Other)
  Sender: FDA-Public Use
  Company Number: US-PFIZER INC-2020188624

PATIENT
  Age: 73 Year
  Sex: Female
  Weight: 86.18 kg

DRUGS (4)
  1. IBRANCE [Suspect]
     Active Substance: PALBOCICLIB
     Indication: Breast cancer metastatic
     Dosage: 125 MG, TWO WEEKS ON AND ONE WEEK OFF
  2. IBRANCE [Suspect]
     Active Substance: PALBOCICLIB
     Dosage: 125 MG, CYCLIC (ONCE A DAY, 21 DAYS ON AND ONE WEEK OFF)
     Dates: start: 202002
  3. IBRANCE [Suspect]
     Active Substance: PALBOCICLIB
     Dosage: 125 MG
  4. FEMARA [Concomitant]
     Active Substance: LETROZOLE
     Dosage: 2.5 MG, 1X/DAY

REACTIONS (7)
  - Haemorrhage [Unknown]
  - Skin abrasion [Unknown]
  - Arthritis [Unknown]
  - Hypoaesthesia [Not Recovered/Not Resolved]
  - Wrong technique in product usage process [Unknown]
  - Fatigue [Unknown]
  - Alopecia [Unknown]
